FAERS Safety Report 8716271 (Version 2)
Quarter: 2013Q4

REPORT INFORMATION
  Report Type: Spontaneous
  Country: JP (occurrence: JP)
  Receive Date: 20120810
  Receipt Date: 20131031
  Transmission Date: 20140711
  Serious: Yes (Other)
  Sender: FDA-Public Use
  Company Number: JP-009507513-1205USA05099

PATIENT
  Age: 56 Year
  Sex: Female

DRUGS (7)
  1. FOSAPREPITANT DIMEGLUMINE [Suspect]
     Dosage: 150 MG,QD
     Route: 042
     Dates: start: 20120501, end: 20120501
  2. DOCETAXEL [Concomitant]
  3. CYCLOPHOSPHAMIDE [Concomitant]
  4. DAI-KENCHU-TO [Concomitant]
     Dosage: UNK
     Dates: start: 20070217
  5. GASCON [Concomitant]
     Dosage: UNK
     Dates: start: 20120217
  6. JUZEN-TAIHO-TO [Concomitant]
     Dosage: UNK
     Dates: start: 20070217
  7. SENNOSIDES [Concomitant]
     Dosage: UNK
     Dates: start: 20070217

REACTIONS (2)
  - Pharyngeal oedema [Recovered/Resolved]
  - Injection site pain [Recovered/Resolved]
